FAERS Safety Report 6850416-9 (Version None)
Quarter: 2010Q3

REPORT INFORMATION
  Report Type: 
  Country: None (occurrence: None)
  Receive Date: 20100716
  Receipt Date: 20071017
  Transmission Date: 20110219
  Serious: No
  Sender: FDA-Public Use
  Company Number: US-PFIZER INC-2007088415

PATIENT
  Sex: Male
  Weight: 93.181 kg

DRUGS (6)
  1. CHANTIX [Suspect]
     Indication: SMOKING CESSATION THERAPY
     Route: 048
     Dates: start: 20070520, end: 20070801
  2. NEXIUM [Concomitant]
     Indication: HIATUS HERNIA
  3. ARTHROTEC [Concomitant]
  4. AMBIEN [Concomitant]
     Indication: SLEEP DISORDER
  5. ALL OTHER THERAPEUTIC PRODUCTS [Concomitant]
  6. ZYRTEC [Concomitant]

REACTIONS (2)
  - ABNORMAL DREAMS [None]
  - DIARRHOEA [None]
